FAERS Safety Report 22282226 (Version 3)
Quarter: 2023Q2

REPORT INFORMATION
  Report Type: Report from Study
  Country: CA (occurrence: CA)
  Receive Date: 20230504
  Receipt Date: 20230522
  Transmission Date: 20230722
  Serious: Yes (Other)
  Sender: FDA-Public Use
  Company Number: CA-JNJFOC-20230459844

PATIENT
  Age: 4 Decade
  Sex: Female
  Weight: 89 kg

DRUGS (1)
  1. REMICADE [Suspect]
     Active Substance: INFLIXIMAB
     Indication: Hidradenitis
     Dosage: STRENGTH: 500 MILLIGRAM
     Route: 042
     Dates: start: 20201020

REACTIONS (1)
  - Lymphoma [Not Recovered/Not Resolved]
